FAERS Safety Report 12637804 (Version 1)
Quarter: 2016Q3

REPORT INFORMATION
  Report Type: Spontaneous
  Country: US (occurrence: US)
  Receive Date: 20160809
  Receipt Date: 20160809
  Transmission Date: 20161109
  Serious: No
  Sender: FDA-Public Use
  Company Number: US-PERRIGO-15US007653

PATIENT
  Age: 27 Year
  Sex: Female
  Weight: 81.63 kg

DRUGS (1)
  1. CLINDAMYCIN PHOSPHATE AND BENZOYL PEROXIDE [Suspect]
     Active Substance: BENZOYL PEROXIDE\CLINDAMYCIN PHOSPHATE
     Indication: ACNE
     Dosage: 1 SMALL APPLICATION, QD
     Route: 061
     Dates: start: 201506, end: 20150717

REACTIONS (2)
  - Application site dryness [Recovered/Resolved]
  - Drug ineffective [Unknown]

NARRATIVE: CASE EVENT DATE: 201506
